FAERS Safety Report 21843673 (Version 1)
Quarter: 2023Q1

REPORT INFORMATION
  Report Type: Spontaneous
  Country: US (occurrence: US)
  Receive Date: 20230110
  Receipt Date: 20230110
  Transmission Date: 20230417
  Serious: No
  Sender: FDA-Public Use
  Company Number: US-ABBVIE-4256367

PATIENT
  Age: 33 Year
  Sex: Female

DRUGS (2)
  1. ADALIMUMAB [Suspect]
     Active Substance: ADALIMUMAB
     Indication: Hidradenitis
     Route: 058
  2. LEUPROLIDE ACETATE [Suspect]
     Active Substance: LEUPROLIDE ACETATE
     Indication: Hormone suppression therapy
     Dosage: 11.25 MG INJECTIONS EVERY 3 MONTHS
     Route: 065

REACTIONS (4)
  - Drug ineffective [Unknown]
  - Dry skin [Unknown]
  - Night sweats [Unknown]
  - Hot flush [Unknown]
